FAERS Safety Report 4318654-7 (Version None)
Quarter: 2004Q1

REPORT INFORMATION
  Report Type: 
  Country: None (occurrence: None)
  Receive Date: 20040315
  Receipt Date: 20040315
  Transmission Date: 20041129
  Serious: Yes (Death)
  Sender: FDA-Public Use
  Company Number: None

PATIENT
  Sex: Female
  Weight: 43.5453 kg

DRUGS (7)
  1. CAMPTOSAR [Suspect]
     Indication: COLORECTAL CANCER METASTATIC
     Dosage: ONCE WEEK X 4 WK 2 WKS OF REST
  2. FLOXURIDINE [Suspect]
  3. LEUCOVORIN 500 MG /M2 IV OVER 2 HRS [Suspect]
  4. ACCUPRIL [Concomitant]
  5. FOSAMAX [Concomitant]
  6. LEXAPRO [Concomitant]
  7. SCOPE [Concomitant]

REACTIONS (1)
  - OEDEMA PERIPHERAL [None]
